FAERS Safety Report 7204215-9 (Version None)
Quarter: 2010Q4

REPORT INFORMATION
  Report Type: 
  Country: None (occurrence: None)
  Receive Date: 20101230
  Receipt Date: 20101207
  Transmission Date: 20110411
  Serious: Yes (Hospitalization, Disabling)
  Sender: FDA-Public Use
  Company Number: US-BAYER-201032425NA

PATIENT
  Sex: Female
  Weight: 54 kg

DRUGS (5)
  1. YAZ [Suspect]
     Indication: PRODUCT USED FOR UNKNOWN INDICATION
     Route: 065
     Dates: start: 20080530, end: 20080716
  2. ASCORBIC ACID [Concomitant]
     Indication: NASOPHARYNGITIS
  3. FLUCONAZOLE [Concomitant]
     Dosage: 150 MG, UNK
     Dates: start: 20080621
  4. MORPHINE [Concomitant]
     Indication: PAIN
  5. ADVIL [Concomitant]
     Indication: DYSMENORRHOEA

REACTIONS (7)
  - ABDOMINAL PAIN UPPER [None]
  - ANXIETY [None]
  - CHEST DISCOMFORT [None]
  - DYSPNOEA [None]
  - PAIN [None]
  - PULMONARY EMBOLISM [None]
  - THROMBOSIS [None]
